FAERS Safety Report 9505858 (Version 1)
Quarter: 2013Q1

REPORT INFORMATION
  Report Type: Spontaneous
  Country: US (occurrence: None)
  Receive Date: 20130219
  Receipt Date: 20130219
  Transmission Date: 20140127
  Serious: Yes (Hospitalization, Other)
  Sender: FDA-Public Use
  Company Number: 1207USA009851

PATIENT
  Sex: Female

DRUGS (4)
  1. ZOCOR (SIMVASTATIN) [Suspect]
     Route: 048
  2. TREDAPTIVE [Suspect]
     Route: 048
  3. METOPROLOL (METOPROLOL) [Concomitant]
  4. SALUTEC (HYDROCHLOROTHIAZIDE, RAMIPRIL) [Concomitant]

REACTIONS (2)
  - Hepatic failure [None]
  - Rhabdomyolysis [None]
